FAERS Safety Report 18782139 (Version 1)
Quarter: 2021Q1

REPORT INFORMATION
  Report Type: Spontaneous
  Country: US (occurrence: US)
  Receive Date: 20210125
  Receipt Date: 20210125
  Transmission Date: 20210419
  Serious: Yes (Other)
  Sender: FDA-Public Use
  Company Number: None

PATIENT
  Age: 36 Year
  Sex: Female
  Weight: 116.5 kg

DRUGS (2)
  1. ACETAMINOPHEN/CAFFEINE/BUTALBITAL PO X1 [Concomitant]
     Dates: start: 20210109, end: 20210109
  2. BAMLANIVIMAB. [Suspect]
     Active Substance: BAMLANIVIMAB
     Indication: COVID-19
     Dosage: ?          OTHER FREQUENCY:ONCE;?
     Route: 042

REACTIONS (3)
  - Extravasation [None]
  - Feeling cold [None]
  - Infusion related reaction [None]

NARRATIVE: CASE EVENT DATE: 20210109
